FAERS Safety Report 4528682-4 (Version None)
Quarter: 2004Q4

REPORT INFORMATION
  Report Type: 
  Country: None (occurrence: None)
  Receive Date: 20041216
  Receipt Date: 20041203
  Transmission Date: 20050328
  Serious: Yes (Death)
  Sender: FDA-Public Use
  Company Number: BR-BOEHRINGER INGELHEIM PHARMMACEUTICALS, INC.-2004-BP-13100BR

PATIENT
  Age: 95 Year
  Sex: Male
  Weight: 72 kg

DRUGS (5)
  1. SPIRIVA [Suspect]
     Route: 055
     Dates: start: 20030901
  2. SPIRIVA [Suspect]
     Indication: ASTHMA
  3. PULMICORT [Concomitant]
  4. BAMIFIX [Concomitant]
     Route: 048
  5. TRAMAL [Concomitant]

REACTIONS (2)
  - BLADDER CANCER [None]
  - METASTASES TO LUNG [None]
